FAERS Safety Report 7646884-5 (Version None)
Quarter: 2011Q3

REPORT INFORMATION
  Report Type: 
  Country: None (occurrence: None)
  Receive Date: 20110801
  Receipt Date: 20110720
  Transmission Date: 20111222
  Serious: Yes (Hospitalization, Other)
  Sender: FDA-Public Use
  Company Number: US-ASTRAZENECA-2007UW27333

PATIENT
  Age: 16997 Day
  Sex: Male
  Weight: 107 kg

DRUGS (20)
  1. DIPHENHYDRAMINE HCL [Concomitant]
  2. NICOTINE [Concomitant]
  3. TRAZODONE HCL [Concomitant]
     Dates: start: 19971101
  4. SEROQUEL [Suspect]
     Dosage: 25MG-600MG
     Route: 048
     Dates: start: 20020701
  5. DEPAKOTE [Concomitant]
     Dates: start: 20030901
  6. ASPIRIN [Concomitant]
  7. LISINOPRIL [Concomitant]
  8. SILDENAFIL CITRATE [Concomitant]
  9. SEROQUEL [Suspect]
     Indication: ANXIETY
     Dosage: 100 MG, 200 MG,  300 MG
     Route: 048
     Dates: start: 20020701, end: 20071001
  10. SEROQUEL [Suspect]
     Dosage: 25MG-600MG
     Route: 048
     Dates: start: 20020701
  11. PAROXETINE HCL [Concomitant]
     Dates: start: 20000901
  12. VARDENAFIL HYDROCHLORIDE (LEVITRA) [Concomitant]
  13. HYDROXYZINE [Concomitant]
  14. ACARBOSE [Concomitant]
  15. LEVALBUTEROL HCL [Concomitant]
  16. SEROQUEL [Suspect]
     Indication: INSOMNIA
     Dosage: 100 MG, 200 MG,  300 MG
     Route: 048
     Dates: start: 20020701, end: 20071001
  17. SEROQUEL [Suspect]
     Indication: BIPOLAR DISORDER
     Dosage: 100 MG, 200 MG,  300 MG
     Route: 048
     Dates: start: 20020701, end: 20071001
  18. ALBUTEROL SULFATE AUTOHALER [Concomitant]
  19. LORAZEPAM [Concomitant]
  20. SEROQUEL [Suspect]
     Dosage: 25MG-600MG
     Route: 048
     Dates: start: 20020701

REACTIONS (19)
  - HEADACHE [None]
  - HOMICIDAL IDEATION [None]
  - CHEST PAIN [None]
  - DIABETIC RETINOPATHY [None]
  - HYPOACUSIS [None]
  - ARTHRALGIA [None]
  - DIARRHOEA [None]
  - BIPOLAR DISORDER [None]
  - HYPERMETROPIA [None]
  - DYSLIPIDAEMIA [None]
  - COUGH [None]
  - MUSCLE SPASMS [None]
  - DEPRESSED MOOD [None]
  - CHRONIC OBSTRUCTIVE PULMONARY DISEASE [None]
  - AFFECTIVE DISORDER [None]
  - SUICIDAL IDEATION [None]
  - ADJUSTMENT DISORDER WITH ANXIETY [None]
  - BACK PAIN [None]
  - DIABETES MELLITUS [None]
